FAERS Safety Report 5809822-3 (Version None)
Quarter: 2008Q3

REPORT INFORMATION
  Report Type: 
  Country: None (occurrence: None)
  Receive Date: 20080714
  Receipt Date: 20080714
  Transmission Date: 20090109
  Serious: Yes (Other)
  Sender: FDA-Public Use
  Company Number: None

PATIENT
  Sex: Female

DRUGS (1)
  1. AUGMENTIN '200' [Suspect]
     Indication: OTITIS MEDIA
     Dosage: 3ML BID PO
     Route: 048
     Dates: start: 20060613, end: 20070623

REACTIONS (1)
  - RASH GENERALISED [None]
